FAERS Safety Report 20903156 (Version 1)
Quarter: 2022Q2

REPORT INFORMATION
  Report Type: Report from Study
  Country: AE (occurrence: AE)
  Receive Date: 20220601
  Receipt Date: 20220601
  Transmission Date: 20220721
  Serious: Yes (Hospitalization)
  Sender: FDA-Public Use
  Company Number: AE-NOVARTISPH-NVSC2022AE124399

PATIENT
  Sex: Female

DRUGS (1)
  1. KISQALI [Suspect]
     Active Substance: RIBOCICLIB
     Indication: Breast cancer metastatic
     Dosage: 600 MG, QD
     Route: 048
     Dates: start: 20190528

REACTIONS (3)
  - Brain neoplasm [Not Recovered/Not Resolved]
  - Hepatic neoplasm [Not Recovered/Not Resolved]
  - Bladder neoplasm [Not Recovered/Not Resolved]

NARRATIVE: CASE EVENT DATE: 20220201
